FAERS Safety Report 5872376-X (Version None)
Quarter: 2008Q3

REPORT INFORMATION
  Report Type: 
  Country: None (occurrence: None)
  Receive Date: 20080905
  Receipt Date: 20080827
  Transmission Date: 20090109
  Serious: Yes (Other)
  Sender: FDA-Public Use
  Company Number: JP-JNJFOC-20080806338

PATIENT
  Sex: Female
  Weight: 42 kg

DRUGS (6)
  1. REMICADE [Suspect]
     Dosage: 2 DOSES
     Route: 042
  2. REMICADE [Suspect]
     Indication: RHEUMATOID ARTHRITIS
     Dosage: 13 DOSES ON UNKNOWN DATES
     Route: 042
  3. PREDONINE [Concomitant]
     Indication: PROPHYLAXIS
     Route: 042
  4. METHOTREXATE [Concomitant]
     Indication: RHEUMATOID ARTHRITIS
     Route: 048
  5. TALION [Concomitant]
     Indication: PROPHYLAXIS
     Route: 048
  6. FAMOTIDINE [Concomitant]
     Indication: GASTRITIS PROPHYLAXIS
     Route: 048

REACTIONS (2)
  - INFUSION RELATED REACTION [None]
  - SHOCK [None]
